FAERS Safety Report 9176386 (Version 2)
Quarter: 2013Q2

REPORT INFORMATION
  Report Type: Spontaneous
  Country: US (occurrence: US)
  Receive Date: 20130321
  Receipt Date: 20130412
  Transmission Date: 20140414
  Serious: No
  Sender: FDA-Public Use
  Company Number: US-BIOGENIDEC-2013BI025939

PATIENT
  Age: 28 Year
  Sex: Female

DRUGS (1)
  1. TYSABRI [Suspect]
     Indication: MULTIPLE SCLEROSIS
     Route: 042
     Dates: start: 20120210, end: 20130313

REACTIONS (7)
  - Mobility decreased [Not Recovered/Not Resolved]
  - Oedema peripheral [Recovered/Resolved]
  - Fall [Not Recovered/Not Resolved]
  - Menstrual disorder [Recovered/Resolved]
  - Anaemia [Recovered/Resolved]
  - Menstruation irregular [Recovered/Resolved]
  - Asthenia [Recovered/Resolved with Sequelae]
